FAERS Safety Report 7790341-2 (Version None)
Quarter: 2011Q3

REPORT INFORMATION
  Report Type: 
  Country: None (occurrence: None)
  Receive Date: 20110930
  Receipt Date: 20110922
  Transmission Date: 20111222
  Serious: Yes (Death, Hospitalization)
  Sender: FDA-Public Use
  Company Number: JP-AMGEN-JPNCT2011027160

PATIENT
  Age: 78 Year
  Sex: Male
  Weight: 65 kg

DRUGS (7)
  1. PANITUMUMAB [Suspect]
     Indication: COLORECTAL CANCER
     Dosage: 6 MG/KG, Q2WK
     Route: 041
     Dates: start: 20101105, end: 20101105
  2. AMLODIPINE [Concomitant]
     Indication: HYPERTENSION
     Route: 048
     Dates: start: 20100716, end: 20110426
  3. PANITUMUMAB [Suspect]
     Dosage: 4.6 MG/KG, Q2WK
     Route: 041
     Dates: start: 20101126, end: 20110304
  4. ANTIHISTAMINES [Concomitant]
     Indication: PROPHYLAXIS
  5. CORTICOSTEROIDS [Concomitant]
     Indication: PROPHYLAXIS
  6. PANITUMUMAB [Suspect]
     Dosage: 3.8 MG/KG, Q2WK
     Route: 041
     Dates: start: 20110318, end: 20110401
  7. HOKUNALIN [Concomitant]
     Dosage: 2 MG, QD
     Route: 062
     Dates: start: 20090821, end: 20110426

REACTIONS (5)
  - MUSCLE TWITCHING [None]
  - DERMATITIS [None]
  - HYPOMAGNESAEMIA [None]
  - INTERSTITIAL LUNG DISEASE [None]
  - HYPOCALCAEMIA [None]
